FAERS Safety Report 5216875-2 (Version None)
Quarter: 2007Q1

REPORT INFORMATION
  Report Type: 
  Country: None (occurrence: None)
  Receive Date: 20070119
  Receipt Date: 20070108
  Transmission Date: 20070707
  Serious: Yes (Other)
  Sender: FDA-Public Use
  Company Number: 15484

PATIENT
  Age: 32 Year
  Sex: Female

DRUGS (1)
  1. METHOTREXATE [Suspect]
     Indication: ECTOPIC PREGNANCY

REACTIONS (6)
  - ABDOMINAL PAIN LOWER [None]
  - BONE MARROW FAILURE [None]
  - DRUG EXPOSURE DURING PREGNANCY [None]
  - THROMBOCYTOPENIA [None]
  - UTERINE ENLARGEMENT [None]
  - UTERINE HAEMORRHAGE [None]
